FAERS Safety Report 5187319-4 (Version None)
Quarter: 2006Q4

REPORT INFORMATION
  Report Type: 
  Country: None (occurrence: None)
  Receive Date: 20061214
  Receipt Date: 20061201
  Transmission Date: 20070319
  Serious: Yes (Hospitalization)
  Sender: FDA-Public Use
  Company Number: 2006144178

PATIENT
  Age: 79 Year
  Sex: Male
  Weight: 107 kg

DRUGS (8)
  1. SUTENT [Suspect]
     Indication: RENAL CELL CARCINOMA STAGE UNSPECIFIED
     Dosage: 37.5 MG (37.5 MG, QD:  EVERY DAY), ORAL
     Route: 048
     Dates: start: 20061004, end: 20061031
  2. CILAZAPRIL    (CILAZAPRIL) [Concomitant]
  3. DOPEGYT     (METHYLDOPA) [Concomitant]
  4. BISOCARD (BISOPROLOL) [Concomitant]
  5. FUROSEMIDE [Concomitant]
  6. KALDYUM (POTASSIUM CHLORIDE) [Concomitant]
  7. CARDURA XL [Concomitant]
  8. METOCLOPRAMIDE [Concomitant]

REACTIONS (3)
  - ASTHENIA [None]
  - FACE OEDEMA [None]
  - OEDEMA PERIPHERAL [None]
